APPROVED DRUG PRODUCT: AZACITIDINE
Active Ingredient: AZACITIDINE
Strength: 100MG/VIAL
Dosage Form/Route: POWDER;INTRAVENOUS, SUBCUTANEOUS
Application: A201537 | Product #001 | TE Code: AP
Applicant: DR REDDYS LABORATORIES LTD
Approved: Sep 16, 2013 | RLD: No | RS: No | Type: RX